FAERS Safety Report 15770546 (Version 1)
Quarter: 2018Q4

REPORT INFORMATION
  Report Type: Spontaneous
  Country: PL (occurrence: PL)
  Receive Date: 20181228
  Receipt Date: 20181228
  Transmission Date: 20190205
  Serious: Yes (Hospitalization, Other)
  Sender: FDA-Public Use
  Company Number: PL-BRISTOL-MYERS SQUIBB COMPANY-BMS-2018-119730

PATIENT
  Age: 67 Year
  Sex: Male

DRUGS (1)
  1. OPDIVO [Suspect]
     Active Substance: NIVOLUMAB
     Indication: RENAL CANCER
     Dosage: 240 MG, Q2WK
     Route: 065
     Dates: start: 201809, end: 201811

REACTIONS (8)
  - Dyspnoea [Unknown]
  - Renal function test abnormal [Unknown]
  - Infection [Unknown]
  - Pulmonary oedema [Unknown]
  - Haematology test abnormal [Unknown]
  - Pyrexia [Unknown]
  - Ecchymosis [Unknown]
  - Liver function test abnormal [Unknown]

NARRATIVE: CASE EVENT DATE: 201809
